FAERS Safety Report 10726119 (Version 1)
Quarter: 2015Q1

REPORT INFORMATION
  Report Type: Spontaneous
  Country: IT (occurrence: None)
  Receive Date: 20150116
  Receipt Date: 20150116
  Transmission Date: 20150721
  Serious: Yes (Other)
  Sender: FDA-Public Use
  Company Number: INT_00617_2015

PATIENT
  Age: 60 Year
  Sex: Male

DRUGS (2)
  1. RADIATION THERAPY [Suspect]
     Active Substance: RADIATION THERAPY
     Indication: LARYNGEAL CANCER
  2. CISPLATIN (CISPLATIN) (HQ SPECIALTY) [Suspect]
     Active Substance: CISPLATIN
     Indication: LARYNGEAL CANCER

REACTIONS (6)
  - Acute myeloid leukaemia [None]
  - Thrombocytopenia [None]
  - Chronic myelomonocytic leukaemia [None]
  - Myelodysplastic syndrome [None]
  - Myeloproliferative disorder [None]
  - Laryngeal cancer [None]
